FAERS Safety Report 10978031 (Version 5)
Quarter: 2015Q4

REPORT INFORMATION
  Report Type: Report from Study
  Country: US (occurrence: US)
  Receive Date: 20150402
  Receipt Date: 20151016
  Transmission Date: 20160304
  Serious: Yes (Other)
  Sender: FDA-Public Use
  Company Number: US-SA-2015SA040240

PATIENT
  Age: 60 Year
  Sex: Female

DRUGS (1)
  1. LEMTRADA [Suspect]
     Active Substance: ALEMTUZUMAB
     Indication: RELAPSING-REMITTING MULTIPLE SCLEROSIS
     Dosage: FREQUENCY: 1 VIAL/DAY
     Route: 041
     Dates: start: 20150323, end: 20150327

REACTIONS (11)
  - Hypoaesthesia [Unknown]
  - Paraesthesia [Unknown]
  - Chills [Recovering/Resolving]
  - Stress [Unknown]
  - Multiple sclerosis [Unknown]
  - Gait disturbance [Recovered/Resolved]
  - Pain [Recovering/Resolving]
  - Candida infection [Recovered/Resolved]
  - Balance disorder [Unknown]
  - Hemiparesis [Recovering/Resolving]
  - Headache [Recovering/Resolving]

NARRATIVE: CASE EVENT DATE: 2015
